FAERS Safety Report 4476990-8 (Version None)
Quarter: 2004Q4

REPORT INFORMATION
  Report Type: 
  Country: None (occurrence: None)
  Receive Date: 20041018
  Receipt Date: 20041008
  Transmission Date: 20050328
  Serious: Yes (Death)
  Sender: FDA-Public Use
  Company Number: ES-ABBOTT-04P-144-0276850-00

PATIENT
  Age: 50 Year
  Sex: Male

DRUGS (8)
  1. AKINETON [Suspect]
     Indication: PROPHYLAXIS
     Route: 048
     Dates: end: 20040728
  2. VALPROMIDE [Interacting]
     Indication: DRUG USE FOR UNKNOWN INDICATION
     Route: 048
     Dates: end: 20040728
  3. TRAZODONE HCL [Interacting]
     Indication: DRUG USE FOR UNKNOWN INDICATION
     Route: 048
     Dates: end: 20040728
  4. RISPERDAL CONSTA [Interacting]
     Indication: DRUG USE FOR UNKNOWN INDICATION
     Route: 048
     Dates: start: 20040317, end: 20040728
  5. VANTRAL RETARD [Interacting]
     Indication: DRUG USE FOR UNKNOWN INDICATION
     Route: 048
     Dates: start: 20040427, end: 20040728
  6. RHODOGIL [Concomitant]
     Indication: DRUG USE FOR UNKNOWN INDICATION
     Route: 048
     Dates: start: 20040504, end: 20040509
  7. OLANZAPINE [Concomitant]
     Indication: DRUG USE FOR UNKNOWN INDICATION
     Dates: end: 20040317
  8. CLORAZEPATE DIPOTASSIUM [Concomitant]
     Indication: DRUG USE FOR UNKNOWN INDICATION
     Dates: end: 20040317

REACTIONS (2)
  - DRUG INTERACTION [None]
  - SUICIDE ATTEMPT [None]
